FAERS Safety Report 14321137 (Version 3)
Quarter: 2018Q2

REPORT INFORMATION
  Report Type: Report from Study
  Country: DE (occurrence: DE)
  Receive Date: 20171223
  Receipt Date: 20180417
  Transmission Date: 20180711
  Serious: Yes (Life-Threatening, Hospitalization, Other)
  Sender: FDA-Public Use
  Company Number: PHHY2016DE180313

PATIENT
  Age: 69 Year
  Sex: Female
  Weight: 61 kg

DRUGS (8)
  1. ENTRESTO [Suspect]
     Active Substance: SACUBITRIL\VALSARTAN
     Indication: CARDIAC FAILURE CHRONIC
     Dosage: 50 MG (24 MG SACUBITRIL AND 26 MG VALSARTAN), BID
     Route: 048
     Dates: start: 20160518, end: 20161209
  2. EPLERENON GENERIC [Concomitant]
     Indication: CARDIAC FAILURE
  3. PROCORALAN [Concomitant]
     Active Substance: IVABRADINE
     Indication: PRODUCT USED FOR UNKNOWN INDICATION
     Dosage: 1 DF (7.5 OT), BID
     Route: 048
     Dates: start: 20160623
  4. ENTRESTO [Suspect]
     Active Substance: SACUBITRIL\VALSARTAN
     Dosage: 0.5 DF (24/26 MG), QD
     Route: 065
     Dates: start: 20171019
  5. ENTRESTO [Suspect]
     Active Substance: SACUBITRIL\VALSARTAN
     Indication: LEFT VENTRICULAR FAILURE
     Dosage: 1 DF (24/26 MG), QD
     Route: 048
     Dates: start: 20161213, end: 20170426
  6. ENTRESTO [Suspect]
     Active Substance: SACUBITRIL\VALSARTAN
     Dosage: 0.5 DF (24 MG/ 26 MG), BID
     Route: 048
     Dates: start: 20170426, end: 20171019
  7. EPLERENON GENERIC [Concomitant]
     Indication: CARDIAC FAILURE CONGESTIVE
     Dosage: 1 DF, QD
     Route: 048
     Dates: start: 20160623
  8. ASPIRIN. [Concomitant]
     Active Substance: ASPIRIN
     Indication: PRODUCT USED FOR UNKNOWN INDICATION
     Dosage: 1 DF (100 OT), QD
     Route: 048
     Dates: start: 20160623

REACTIONS (15)
  - Blood creatinine abnormal [Unknown]
  - Drug prescribing error [Unknown]
  - Varicose vein [Recovered/Resolved]
  - Blood iron decreased [Recovering/Resolving]
  - Cardiac failure [Recovering/Resolving]
  - Renal failure [Not Recovered/Not Resolved]
  - Hepatic congestion [Recovered/Resolved]
  - Pruritus [Not Recovered/Not Resolved]
  - Hypotension [Not Recovered/Not Resolved]
  - Wrong technique in product usage process [Unknown]
  - Skin ulcer [Recovered/Resolved]
  - Underdose [Unknown]
  - International normalised ratio increased [Recovered/Resolved]
  - Varicose vein [Recovered/Resolved]
  - Reaction to excipient [Not Recovered/Not Resolved]

NARRATIVE: CASE EVENT DATE: 20160922
